FAERS Safety Report 4657441-7 (Version None)
Quarter: 2005Q2

REPORT INFORMATION
  Report Type: 
  Country: None (occurrence: None)
  Receive Date: 20050509
  Receipt Date: 20050509
  Transmission Date: 20051028
  Serious: Yes (Other)
  Sender: FDA-Public Use
  Company Number: None

PATIENT
  Age: 14 Year
  Sex: Female

DRUGS (27)
  1. CORRECTOL [Suspect]
     Indication: CONSTIPATION
     Dosage: 1-2 PILLS PRN ORAL
     Route: 048
     Dates: start: 19700101, end: 19990101
  2. EX-LAX TABLETS [Suspect]
     Indication: CONSTIPATION
     Dosage: 1-2 PILLS PRN ORAL
     Route: 048
     Dates: start: 19700101, end: 19980101
  3. DULCOLAX [Suspect]
     Indication: CONSTIPATION
     Dosage: 1-2 PILLS PRN ORAL
     Route: 048
     Dates: start: 19700101, end: 19980101
  4. QUESTRAN [Concomitant]
  5. PREVACID [Concomitant]
  6. BENTYL [Concomitant]
  7. REGLAN [Concomitant]
  8. PRILOSEC [Concomitant]
  9. ANUSOL [Concomitant]
  10. IMODIUM [Concomitant]
  11. LEVSIN [Concomitant]
  12. ZOCOR [Concomitant]
  13. ZIAC [Concomitant]
  14. ESTROPIPATE [Concomitant]
  15. HYZAAR [Concomitant]
  16. NEXIUM [Concomitant]
  17. EFFEXOR [Concomitant]
  18. FOSAMAX [Concomitant]
  19. CLARINEX [Concomitant]
  20. NYSTATIN [Concomitant]
  21. BIAXIN [Concomitant]
  22. BENZONATATE [Concomitant]
  23. AMARYL [Concomitant]
  24. PREDNISONE [Concomitant]
  25. LINDANE [Concomitant]
  26. TRIAMCINOLONE [Concomitant]
  27. HYDROXYZINE [Concomitant]

REACTIONS (13)
  - ABDOMINAL PAIN UPPER [None]
  - CHEST PAIN [None]
  - COLONIC POLYP [None]
  - DIARRHOEA [None]
  - DYSPEPSIA [None]
  - ERUCTATION [None]
  - FAECAL INCONTINENCE [None]
  - HAEMORRHOIDS [None]
  - IRRITABLE BOWEL SYNDROME [None]
  - LIPOMA [None]
  - MUSCLE SPASMS [None]
  - NAUSEA [None]
  - VOMITING [None]
